FAERS Safety Report 12763020 (Version 3)
Quarter: 2016Q4

REPORT INFORMATION
  Report Type: Report from Study
  Country: US (occurrence: US)
  Receive Date: 20160920
  Receipt Date: 20161109
  Transmission Date: 20170207
  Serious: Yes (Other)
  Sender: FDA-Public Use
  Company Number: PHEH2016US023301

PATIENT
  Sex: Male

DRUGS (4)
  1. IMATINIB [Suspect]
     Active Substance: IMATINIB
     Indication: PRODUCT USED FOR UNKNOWN INDICATION
     Dosage: 400 MG, UNK
     Route: 065
  2. GLEEVEC [Suspect]
     Active Substance: IMATINIB MESYLATE
     Dosage: UNK
     Route: 065
     Dates: start: 2013, end: 2014
  3. GLEEVEC [Suspect]
     Active Substance: IMATINIB MESYLATE
     Indication: NEOPLASM
     Dosage: 400 MG, UNK
     Route: 065
     Dates: start: 2005
  4. SPRYCEL [Concomitant]
     Active Substance: DASATINIB
     Indication: NEOPLASM
     Route: 065

REACTIONS (9)
  - Arthralgia [Unknown]
  - Drug ineffective [Unknown]
  - Neoplasm recurrence [Unknown]
  - Swelling [Unknown]
  - Haemorrhagic diathesis [Unknown]
  - Swelling face [Unknown]
  - Contusion [Unknown]
  - Generalised oedema [Unknown]
  - Muscle spasms [Unknown]

NARRATIVE: CASE EVENT DATE: 2013
